FAERS Safety Report 25865918 (Version 4)
Quarter: 2025Q4

REPORT INFORMATION
  Report Type: Report from Study
  Country: EU (occurrence: EU)
  Receive Date: 20250930
  Receipt Date: 20251107
  Transmission Date: 20260117
  Serious: Yes (Life-Threatening, Hospitalization)
  Sender: ABBVIE
  Company Number: EU-ABBVIE-6482094

PATIENT
  Age: 78 Year
  Sex: Female
  Weight: 60 kg

DRUGS (11)
  1. FOSCARBIDOPA\FOSLEVODOPA [Suspect]
     Active Substance: FOSCARBIDOPA\FOSLEVODOPA
     Indication: Parkinson^s disease
     Dosage: DURATION OF THE DAILY INFUSION: 24 HOURS?FLOW RATE 0.44 ML/H?DAILY DOSE OF FOSLEVODOPA/FOSCARBIDO...
     Route: 058
     Dates: start: 20250318
  2. FOSCARBIDOPA\FOSLEVODOPA [Suspect]
     Active Substance: FOSCARBIDOPA\FOSLEVODOPA
     Dosage: DURATION OF THE DAILY INFUSION: 24 HOURS?FLOW RATE 0.54 ML/H?DAILY DOSE OF FOSLEVODOPA/FOSCARBIDO...
     Route: 058
     Dates: start: 20250319, end: 20250423
  3. FOSCARBIDOPA\FOSLEVODOPA [Suspect]
     Active Substance: FOSCARBIDOPA\FOSLEVODOPA
     Dosage: LOADING DOSE AT THE START OF TREATMENT: 0.10 ML,?DURATION OF THE DAILY INFUSION 24 HOURS?BASE RAT...
     Route: 058
     Dates: start: 20250423, end: 20250725
  4. FOSCARBIDOPA\FOSLEVODOPA [Suspect]
     Active Substance: FOSCARBIDOPA\FOSLEVODOPA
     Dosage: DURATION OF THE DAILY INFUSION 24 HOURS?BASIC FLOW 0.52 ML/H DURATION 04. HOURS AT AFTERNOON  ?LO...
     Route: 058
     Dates: start: 20250725, end: 20250910
  5. FOSCARBIDOPA\FOSLEVODOPA [Suspect]
     Active Substance: FOSCARBIDOPA\FOSLEVODOPA
     Dosage: DURATION OF THE DAILY INFUSION 24 HOURS?BASIC FLOW 0.52 ML/H DURATION 08. HOURS AT AFTERNOON  ?LO...
     Route: 058
     Dates: start: 20250910, end: 20250925
  6. FOSCARBIDOPA\FOSLEVODOPA [Suspect]
     Active Substance: FOSCARBIDOPA\FOSLEVODOPA
     Dosage: DURATION OF THE DAILY INFUSION 24 HOURS?BASIC FLOW 0.52 ML/H DURATION 12. HOURS IN MORNING AND AF...
     Route: 058
     Dates: start: 20250925
  7. APOMORPHINE [Concomitant]
     Active Substance: APOMORPHINE
     Indication: Parkinson^s disease
     Dosage: DAILY DOSE: 2 MG/H PDT 13 H
     Route: 058
     Dates: start: 20250318, end: 20250318
  8. VITAMIN D [Concomitant]
     Active Substance: VITAMIN D NOS
     Indication: Product used for unknown indication
  9. IBUPROFEN [Concomitant]
     Active Substance: IBUPROFEN
     Indication: Product used for unknown indication
     Dosage: PUNCTURE POINT
  10. PRAMIPEXOLE [Concomitant]
     Active Substance: PRAMIPEXOLE
     Indication: Parkinson^s disease
     Dosage: 2 TAB IN THE MORNING
     Dates: start: 20120515
  11. BENZYL BENZOATE [Concomitant]
     Active Substance: BENZYL BENZOATE
     Indication: Product used for unknown indication

REACTIONS (4)
  - Aggression [Recovered/Resolved]
  - Hallucination [Recovered/Resolved]
  - Dopamine supersensitivity psychosis [Recovered/Resolved]
  - Behaviour disorder [Recovered/Resolved]

NARRATIVE: CASE EVENT DATE: 20250925
